FAERS Safety Report 11517104 (Version 1)
Quarter: 2015Q3

REPORT INFORMATION
  Report Type: Spontaneous
  Country: JP (occurrence: JP)
  Receive Date: 20150917
  Receipt Date: 20150917
  Transmission Date: 20151125
  Serious: Yes (Other)
  Sender: FDA-Public Use
  Company Number: JP-ROXANE LABORATORIES, INC.-2015-RO-01524RO

PATIENT
  Age: 77 Year
  Sex: Female

DRUGS (1)
  1. LINEZOLID. [Suspect]
     Active Substance: LINEZOLID
     Indication: STAPHYLOCOCCAL SEPSIS
     Dosage: 600 MG
     Route: 048

REACTIONS (2)
  - Drug level increased [Unknown]
  - Thrombocytopenia [Unknown]
